FAERS Safety Report 14988281 (Version 1)
Quarter: 2018Q2

REPORT INFORMATION
  Report Type: Spontaneous
  Country: US (occurrence: US)
  Receive Date: 20180519
  Receipt Date: 20180519
  Transmission Date: 20180711
  Serious: Yes (Other)
  Sender: FDA-Public Use
  Company Number: None

PATIENT
  Age: 38 Year
  Sex: Female
  Weight: 60.75 kg

DRUGS (3)
  1. ELOCOM [Suspect]
     Active Substance: MOMETASONE FUROATE
     Route: 061
     Dates: start: 20040511, end: 20110811
  2. DESONIDE. [Suspect]
     Active Substance: DESONIDE
     Indication: ECZEMA
     Route: 061
     Dates: start: 19850520, end: 20110511
  3. VITAMIN C [Concomitant]
     Active Substance: ASCORBIC ACID

REACTIONS (5)
  - Eye swelling [None]
  - Swelling face [None]
  - Wound [None]
  - Erythema [None]
  - Dermatitis [None]

NARRATIVE: CASE EVENT DATE: 20110316
